FAERS Safety Report 20093527 (Version 2)
Quarter: 2022Q1

REPORT INFORMATION
  Report Type: Spontaneous
  Country: CO (occurrence: CO)
  Receive Date: 20211121
  Receipt Date: 20220102
  Transmission Date: 20220423
  Serious: Yes (Hospitalization)
  Sender: FDA-Public Use
  Company Number: CO-PFIZER INC-202101594137

PATIENT
  Age: 48 Year
  Sex: Female

DRUGS (1)
  1. ENBREL [Suspect]
     Active Substance: ETANERCEPT
     Indication: Product used for unknown indication
     Dosage: 50 MG
     Route: 058
     Dates: start: 2019, end: 202110

REACTIONS (6)
  - Eating disorder [Unknown]
  - Product supply issue [Unknown]
  - Product dose omission issue [Unknown]
  - Asthenia [Unknown]
  - Pyrexia [Unknown]
  - Urinary tract infection [Recovered/Resolved]
